APPROVED DRUG PRODUCT: MACRODANTIN
Active Ingredient: NITROFURANTOIN, MACROCRYSTALLINE
Strength: 25MG
Dosage Form/Route: CAPSULE;ORAL
Application: N016620 | Product #003 | TE Code: AB
Applicant: ALMATICA PHARMA LLC
Approved: Approved Prior to Jan 1, 1982 | RLD: Yes | RS: No | Type: RX